FAERS Safety Report 6980565-6 (Version None)
Quarter: 2010Q3

REPORT INFORMATION
  Report Type: 
  Country: None (occurrence: None)
  Receive Date: 20100914
  Receipt Date: 20100909
  Transmission Date: 20110219
  Serious: Yes (Death)
  Sender: FDA-Public Use
  Company Number: PHHY2010BR59572

PATIENT
  Sex: Male

DRUGS (4)
  1. DIOVAN [Suspect]
     Dosage: 160 MG, UNK
  2. DIOVAN [Suspect]
     Dosage: 80 MG, UNK
  3. DIOVAN HCT [Suspect]
     Dosage: 160/12.5 MG, UNK
  4. DIOVAN AMLO [Suspect]
     Dosage: 160/5 MG, UNK

REACTIONS (1)
  - DEATH [None]
